FAERS Safety Report 4538114-8 (Version None)
Quarter: 2004Q4

REPORT INFORMATION
  Report Type: 
  Country: None (occurrence: None)
  Receive Date: 20041223
  Receipt Date: 20041223
  Transmission Date: 20050328
  Serious: Yes (Disabling)
  Sender: FDA-Public Use
  Company Number: None

PATIENT
  Age: 37 Year
  Sex: Female
  Weight: 107.9561 kg

DRUGS (8)
  1. ZYPREXA [Suspect]
     Indication: BIPOLAR DISORDER
     Dosage: 10MG  1X PER DAY ORAL
     Route: 048
     Dates: start: 20030515, end: 20040306
  2. ZYPREXA [Suspect]
     Indication: SLEEP DISORDER
     Dosage: 10MG  1X PER DAY ORAL
     Route: 048
     Dates: start: 20030515, end: 20040306
  3. CLONAZIPAM [Concomitant]
  4. WELLBUTRIN [Concomitant]
  5. EFFEXOR [Concomitant]
  6. SEROQUEL [Concomitant]
  7. BUSPAR [Concomitant]
  8. THYROID HORMONE [Concomitant]

REACTIONS (3)
  - DIABETES MELLITUS NON-INSULIN-DEPENDENT [None]
  - VAGINAL HAEMORRHAGE [None]
  - WEIGHT DECREASED [None]
